FAERS Safety Report 7874630-9 (Version None)
Quarter: 2011Q3

REPORT INFORMATION
  Report Type: 
  Country: None (occurrence: None)
  Receive Date: 20110929
  Receipt Date: 20110728
  Transmission Date: 20111222
  Serious: Yes (Hospitalization)
  Sender: FDA-Public Use
  Company Number: 037996

PATIENT
  Age: 35 Year
  Sex: Male
  Weight: 96 kg

DRUGS (2)
  1. KEPPRA [Suspect]
     Indication: EPILEPSY
     Dosage: (100 MG INTRAVENOUS (NOT OTHERWISE SPECIFIED)), (3000 MG)
     Route: 042
     Dates: start: 20100916
  2. KEPPRA [Suspect]
     Indication: EPILEPSY
     Dosage: (100 MG INTRAVENOUS (NOT OTHERWISE SPECIFIED)), (3000 MG)
     Route: 042
     Dates: start: 20110726

REACTIONS (3)
  - EPILEPSY [None]
  - AMNESIA [None]
  - ANXIETY [None]
